FAERS Safety Report 5721646-4 (Version None)
Quarter: 2008Q2

REPORT INFORMATION
  Report Type: 
  Country: None (occurrence: None)
  Receive Date: 20080429
  Receipt Date: 20080422
  Transmission Date: 20081010
  Serious: Yes (Death)
  Sender: FDA-Public Use
  Company Number: GB-BAYER-200810847BNE

PATIENT
  Age: 79 Year
  Sex: Male
  Weight: 82 kg

DRUGS (6)
  1. SORAFENIB [Suspect]
     Indication: THYROID CANCER METASTATIC
     Dosage: TOTAL DAILY DOSE: 800 MG
     Dates: start: 20080123, end: 20080330
  2. CLOPIDOGREL [Concomitant]
     Indication: CARDIAC DISORDER
     Route: 048
     Dates: end: 20080330
  3. RAMIPRIL [Concomitant]
     Indication: HYPERTENSION
     Route: 048
     Dates: end: 20080201
  4. RAMIPRIL [Concomitant]
     Route: 048
     Dates: start: 20080201, end: 20080330
  5. LEVOTHYROXINE SODIUM [Concomitant]
     Indication: HYPOTHYROIDISM
     Route: 048
     Dates: end: 20080330
  6. LIPITOR [Concomitant]
     Indication: BLOOD CHOLESTEROL INCREASED
     Route: 048
     Dates: end: 20080330

REACTIONS (1)
  - VASCULAR GRAFT COMPLICATION [None]
